FAERS Safety Report 18560875 (Version 2)
Quarter: 2020Q4

REPORT INFORMATION
  Report Type: Report from Study
  Country: US (occurrence: US)
  Receive Date: 20201130
  Receipt Date: 20201214
  Transmission Date: 20210114
  Serious: Yes (Death)
  Sender: FDA-Public Use
  Company Number: US-ALLERGAN-2046311US

PATIENT
  Sex: Female

DRUGS (1)
  1. MEMANTINE HCL 7MG;DONEPEZIL HCL 10MG CAP (TBD) [Suspect]
     Active Substance: DONEPEZIL HYDROCHLORIDE\MEMANTINE HYDROCHLORIDE
     Indication: DEMENTIA
     Dosage: 28 MG, FREQUENCY: ONCE DAILY
     Route: 048
     Dates: start: 201906, end: 20200907

REACTIONS (1)
  - Cardiopulmonary failure [Fatal]
